FAERS Safety Report 24630579 (Version 1)
Quarter: 2024Q4

REPORT INFORMATION
  Report Type: Spontaneous
  Country: US (occurrence: None)
  Receive Date: 20241117
  Receipt Date: 20241117
  Transmission Date: 20250115
  Serious: No
  Sender: Public
  Company Number: None

PATIENT
  Age: 31 Year
  Sex: Male

DRUGS (1)
  1. HUMATIN [Suspect]
     Active Substance: PAROMOMYCIN SULFATE
     Indication: Amoebic dysentery
     Dosage: 500 MG TID ORAL
     Route: 048
     Dates: start: 20241113

REACTIONS (1)
  - Diarrhoea [None]

NARRATIVE: CASE EVENT DATE: 20241113
